FAERS Safety Report 15582461 (Version 1)
Quarter: 2018Q4

REPORT INFORMATION
  Report Type: Spontaneous
  Country: US (occurrence: US)
  Receive Date: 20181105
  Receipt Date: 20181105
  Transmission Date: 20190205
  Serious: Yes (Other)
  Sender: FDA-Public Use
  Company Number: US-THE MEDICINES COMPANY-US-MDCO-18-00673

PATIENT
  Age: 81 Year
  Sex: Female

DRUGS (2)
  1. HEPARIN [Concomitant]
     Active Substance: HEPARIN SODIUM
     Indication: ANTICOAGULANT THERAPY
     Dosage: NOT PROVIDED.
  2. ANGIOMAX [Suspect]
     Active Substance: BIVALIRUDIN
     Indication: ANTICOAGULANT THERAPY
     Dosage: NOT PROVIDED.

REACTIONS (3)
  - Off label use [Recovered/Resolved]
  - Treatment failure [Recovered/Resolved]
  - Atrial thrombosis [Recovered/Resolved]
